FAERS Safety Report 9208675 (Version 1)
Quarter: 2013Q1

REPORT INFORMATION
  Report Type: Spontaneous
  Country: US (occurrence: None)
  Receive Date: 20120806
  Receipt Date: 20120806
  Transmission Date: 20140127
  Serious: Yes (Other)
  Sender: FDA-Public Use
  Company Number: 1797_SP

PATIENT
  Age: 73 Year
  Sex: Female

DRUGS (2)
  1. LEVOFLOXACIN INJECTION IN 5% DEXTROSE [Suspect]
     Indication: PNEUMONIA
     Route: 042
     Dates: start: 20120411, end: 20120414
  2. SOLUMEDROL [Concomitant]

REACTIONS (1)
  - Rash [None]
